FAERS Safety Report 21932315 (Version 2)
Quarter: 2023Q1

REPORT INFORMATION
  Report Type: Spontaneous
  Country: JP (occurrence: JP)
  Receive Date: 20230131
  Receipt Date: 20230209
  Transmission Date: 20230418
  Serious: Yes (Death)
  Sender: FDA-Public Use
  Company Number: A202300040-001

PATIENT
  Age: 68 Year
  Sex: Female

DRUGS (4)
  1. BENDAMUSTINE HYDROCHLORIDE [Suspect]
     Active Substance: BENDAMUSTINE HYDROCHLORIDE
     Indication: Lymphoma
     Dosage: 90 MG/M2, BR THERAPY
     Route: 042
     Dates: start: 20201013, end: 20201014
  2. BENDAMUSTINE HYDROCHLORIDE [Suspect]
     Active Substance: BENDAMUSTINE HYDROCHLORIDE
     Dosage: 90 MG/M2, BR THERAPY
     Route: 042
     Dates: start: 20210107, end: 20210108
  3. RITUXAN [Suspect]
     Active Substance: RITUXIMAB
     Indication: Lymphoma
     Dosage: 375 MG/M2, BR THERAPY
     Route: 042
     Dates: start: 20201013, end: 20201013
  4. RITUXAN [Suspect]
     Active Substance: RITUXIMAB
     Dosage: 375 MG/M2, BR THERAPY
     Route: 042
     Dates: start: 20210107, end: 20210107

REACTIONS (1)
  - COVID-19 [Fatal]

NARRATIVE: CASE EVENT DATE: 20220914
